FAERS Safety Report 25452728 (Version 1)
Quarter: 2025Q2

REPORT INFORMATION
  Report Type: Report from Study
  Country: US (occurrence: US)
  Receive Date: 20250618
  Receipt Date: 20250618
  Transmission Date: 20250716
  Serious: Yes (Other)
  Sender: ABBVIE
  Company Number: US-ABBVIE-6265197

PATIENT
  Sex: Female

DRUGS (1)
  1. HUMIRA [Suspect]
     Active Substance: ADALIMUMAB
     Indication: Rheumatoid arthritis
     Route: 058
     Dates: start: 20240216

REACTIONS (7)
  - Cardiac failure [Recovering/Resolving]
  - Sinus disorder [Unknown]
  - Sinusitis [Recovering/Resolving]
  - Seasonal allergy [Unknown]
  - Cardiac disorder [Recovering/Resolving]
  - Bone pain [Recovering/Resolving]
  - Renal failure [Recovering/Resolving]
